FAERS Safety Report 10205788 (Version 1)
Quarter: 2014Q2

REPORT INFORMATION
  Report Type: Report from Study
  Country: US (occurrence: US)
  Receive Date: 20140530
  Receipt Date: 20140530
  Transmission Date: 20141212
  Serious: Yes (Other)
  Sender: FDA-Public Use
  Company Number: US-BIOGENIDEC-2013BI081286

PATIENT
  Age: 33 Year
  Sex: Female
  Weight: 65 kg

DRUGS (8)
  1. TYSABRI [Suspect]
     Indication: CROHN^S DISEASE
     Route: 042
     Dates: start: 20110818
  2. FLONASE [Concomitant]
     Route: 045
  3. PRENATAL VITAMIN [Concomitant]
  4. CLARITIN [Concomitant]
  5. ASACOL [Concomitant]
  6. ORTHOTRICYCLINE [Concomitant]
  7. ZYRTEC [Concomitant]
     Route: 048
  8. CIPRO [Concomitant]

REACTIONS (1)
  - Caesarean section [Recovered/Resolved]
